FAERS Safety Report 23751278 (Version 1)
Quarter: 2024Q2

REPORT INFORMATION
  Report Type: Spontaneous
  Country: NL (occurrence: NL)
  Receive Date: 20240417
  Receipt Date: 20240417
  Transmission Date: 20240716
  Serious: Yes (Other)
  Sender: FDA-Public Use
  Company Number: None

PATIENT
  Age: 89 Year
  Sex: Female
  Weight: 70.8 kg

DRUGS (6)
  1. CLOPIDOGREL [Suspect]
     Active Substance: CLOPIDOGREL BISULFATE
     Indication: Cerebrovascular accident
     Dosage: TABLET 75MG, 1 TIME PER DAY 1 TABLET
     Dates: start: 20240302, end: 20240312
  2. PANTOPRAZOLE [Suspect]
     Active Substance: PANTOPRAZOLE
     Indication: Cerebrovascular accident
     Dosage: TABLET MSR 20 MG,  1DD1
     Dates: start: 20240302, end: 20240307
  3. ENALAPRIL [Concomitant]
     Active Substance: ENALAPRIL
     Dosage: TABLET, 5 MG (MILLIGRAM)
  4. NIFEDIPINE [Concomitant]
     Active Substance: NIFEDIPINE
     Dosage: 30 MG (MILLIGRAM)
  5. ASPIRIN [Concomitant]
     Active Substance: ASPIRIN
     Dosage: TABLET, 80 MG (MILLIGRAM)
  6. Calcium carbonate ,Cholecalciferol [Concomitant]
     Dosage: 1.25 G/800 IU (500 MG CA), 500 MG/800 IU

REACTIONS (2)
  - Rash macular [Recovering/Resolving]
  - Toxic skin eruption [Recovering/Resolving]
